FAERS Safety Report 6986221-2 (Version None)
Quarter: 2010Q3

REPORT INFORMATION
  Report Type: 
  Country: None (occurrence: None)
  Receive Date: 20100915
  Receipt Date: 20090616
  Transmission Date: 20110219
  Serious: No
  Sender: FDA-Public Use
  Company Number: US-WYE-H09792809

PATIENT
  Age: 30 Year
  Sex: Female

DRUGS (5)
  1. PRISTIQ [Suspect]
     Indication: MAJOR DEPRESSION
     Route: 048
     Dates: start: 20090505, end: 20090501
  2. PRISTIQ [Suspect]
     Route: 048
     Dates: start: 20090501
  3. TOPAMAX [Concomitant]
  4. KLONOPIN [Concomitant]
  5. NUVARING [Concomitant]

REACTIONS (2)
  - DISINHIBITION [None]
  - IRRITABILITY [None]
